FAERS Safety Report 7496268-8 (Version None)
Quarter: 2011Q2

REPORT INFORMATION
  Report Type: 
  Country: None (occurrence: None)
  Receive Date: 20110523
  Receipt Date: 20110519
  Transmission Date: 20111010
  Serious: Yes (Hospitalization)
  Sender: FDA-Public Use
  Company Number: SK-PFIZER INC-2006011147

PATIENT
  Age: 69 Year
  Sex: Female
  Weight: 163 kg

DRUGS (9)
  1. DUPHALAC [Concomitant]
     Route: 048
     Dates: start: 20051214
  2. SEVREDOL [Concomitant]
     Route: 048
     Dates: start: 20060104
  3. PAROXETINE HCL [Concomitant]
     Route: 048
     Dates: start: 20060105
  4. EUTHYROX [Concomitant]
     Route: 048
     Dates: start: 19950101
  5. DURAGESIC-100 [Concomitant]
     Route: 062
     Dates: start: 20060115
  6. SUNITINIB MALATE [Suspect]
     Indication: RENAL CELL CARCINOMA
     Dosage: 50 MG, 1X/DAY
     Route: 048
     Dates: start: 20060104
  7. NIMESULIDE [Concomitant]
     Route: 048
     Dates: start: 20060102
  8. NOVALGIN [Concomitant]
     Route: 048
     Dates: start: 20060102
  9. ALPRAZOLAM [Concomitant]
     Route: 065

REACTIONS (3)
  - VOMITING [None]
  - HYPERTENSION [None]
  - ISCHAEMIC STROKE [None]
